FAERS Safety Report 17865529 (Version 3)
Quarter: 2021Q2

REPORT INFORMATION
  Report Type: Spontaneous
  Country: US (occurrence: US)
  Receive Date: 20200605
  Receipt Date: 20210429
  Transmission Date: 20210717
  Serious: Yes (Hospitalization, Other)
  Sender: FDA-Public Use
  Company Number: US-ASTRAZENECA-2020SE71084

PATIENT
  Age: 1040 Month
  Sex: Female
  Weight: 58.1 kg

DRUGS (2)
  1. CRESTOR [Suspect]
     Active Substance: ROSUVASTATIN CALCIUM
     Indication: BLOOD CHOLESTEROL
     Dosage: EVERY DAY
     Route: 048
     Dates: start: 1980
  2. METHOTREXATE. [Concomitant]
     Active Substance: METHOTREXATE

REACTIONS (19)
  - Hallucination, auditory [Unknown]
  - Clavicle fracture [Unknown]
  - Hip fracture [Unknown]
  - Head injury [Recovered/Resolved]
  - Asthenia [Unknown]
  - Condition aggravated [Unknown]
  - Body height decreased [Unknown]
  - Upper limb fracture [Recovered/Resolved]
  - Balance disorder [Not Recovered/Not Resolved]
  - Muscular weakness [Not Recovered/Not Resolved]
  - Inability to afford medication [Unknown]
  - Fall [Recovered/Resolved]
  - Formication [Unknown]
  - Joint injury [Unknown]
  - Illness [Unknown]
  - Gait inability [Not Recovered/Not Resolved]
  - Nasopharyngitis [Unknown]
  - Pain in extremity [Recovered/Resolved]
  - Weight decreased [Unknown]

NARRATIVE: CASE EVENT DATE: 202003
